FAERS Safety Report 23979275 (Version 1)
Quarter: 2024Q2

REPORT INFORMATION
  Report Type: Report from Study
  Country: DE (occurrence: DE)
  Receive Date: 20240615
  Receipt Date: 20240615
  Transmission Date: 20240716
  Serious: Yes (Other)
  Sender: FDA-Public Use
  Company Number: None

PATIENT
  Age: 57 Year
  Sex: Female
  Weight: 52.7 kg

DRUGS (46)
  1. DOCETAXEL [Suspect]
     Active Substance: DOCETAXEL\DOCETAXEL ANHYDROUS
     Indication: Breast cancer
     Dosage: 120 MG (DATE OF LAST DOSE (118 MG) APPLICATION PRIOR EVENT 10/DEC/2020)
     Dates: start: 20201118, end: 20210104
  2. ZOLEDRONIC ACID [Suspect]
     Active Substance: ZOLEDRONIC ACID
     Indication: Metastases to bone
     Dates: start: 20201216
  3. PERJETA [Suspect]
     Active Substance: PERTUZUMAB
     Indication: Breast cancer
     Dosage: 420 MG (DATE OF MOST RECENT DOSE PRIOR TO AE 20/JUL/2021: 420 MG)
     Dates: start: 20210518, end: 20220608
  4. TRASTUZUMAB [Suspect]
     Active Substance: TRASTUZUMAB
     Indication: Breast cancer
     Dosage: 336 MG (DATE OF LAST DOSE (336 MG) APPLICATION PRIOR EVENT: 10/DEC/2020 DATE OF LAST DOSE (336 MG)
     Dates: start: 20201210, end: 20210328
  5. GRANISETRON [Concomitant]
     Active Substance: GRANISETRON
     Dosage: PER CYCLE
     Dates: start: 20220728, end: 20230327
  6. OMEPRAZOLE [Concomitant]
     Active Substance: DONEPEZIL HYDROCHLORIDE\OMEPRAZOLE\OMEPRAZOLE MAGNESIUM
     Dosage: 20 MG
     Dates: start: 20210104, end: 20210109
  7. PANTOPRAZOLE [Concomitant]
     Active Substance: PANTOPRAZOLE
     Dates: start: 20221017, end: 20221023
  8. NETUPITANT\PALONOSETRON HYDROCHLORIDE [Concomitant]
     Active Substance: NETUPITANT\PALONOSETRON HYDROCHLORIDE
     Dosage: D1 CYCLE
     Dates: start: 20230417
  9. novalgin [Concomitant]
     Dosage: 500 MG
     Dates: start: 20210104, end: 20210109
  10. BISOPROLOL [Concomitant]
     Active Substance: BISOPROLOL\BISOPROLOL FUMARATE
     Dosage: TWICE A DAY
     Dates: start: 20220125, end: 20221215
  11. PEGFILGRASTIM [Concomitant]
     Active Substance: PEGFILGRASTIM
  12. DIMETHINDENE MALEATE [Concomitant]
     Active Substance: DIMETHINDENE MALEATE
     Dosage: 4 MG
     Dates: start: 20201118, end: 20210104
  13. ELIQUIS [Concomitant]
     Active Substance: APIXABAN
     Dosage: 5 MG, 0.5 DAY
     Dates: start: 20210709
  14. IBUPROFEN [Concomitant]
     Active Substance: IBUPROFEN
     Dates: start: 20221025, end: 20221025
  15. MAGNESIUM [Concomitant]
     Active Substance: MAGNESIUM
     Dosage: DAILY
     Dates: start: 20221216
  16. BEPANTHEN [Concomitant]
     Dates: start: 20210622
  17. ACETAMINOPHEN [Concomitant]
     Active Substance: ACETAMINOPHEN
     Dates: start: 20221024, end: 20221024
  18. VITAMIN C [Concomitant]
     Active Substance: ASCORBIC ACID
     Dosage: DAILY
     Dates: start: 20230531
  19. Nisita [Concomitant]
     Dosage: 9999.99 UNKNOWN, DAILY
     Dates: start: 20211103, end: 20220427
  20. SODIUM CHLORIDE [Concomitant]
     Active Substance: SODIUM CHLORIDE
     Dosage: 0.5 DAILY
     Dates: start: 20211026
  21. POLYETHYLENE GLYCOLS [Concomitant]
     Active Substance: POLYETHYLENE GLYCOLS
     Dates: start: 20230620, end: 20230624
  22. OMEGA-3 ACIDS [Concomitant]
     Active Substance: OMEGA-3 FATTY ACIDS
     Dates: start: 20221216
  23. CALCIUM\CHOLECALCIFEROL [Concomitant]
     Active Substance: CALCIUM\CHOLECALCIFEROL
     Dosage: 400 IU, QD
     Dates: start: 20201118
  24. DEXAMETHASONE [Concomitant]
     Active Substance: DEXAMETHASONE
     Dosage: 32 MG
     Dates: start: 20201117, end: 20210106
  25. OMEPRAZOLE [Concomitant]
     Active Substance: DONEPEZIL HYDROCHLORIDE\OMEPRAZOLE\OMEPRAZOLE MAGNESIUM
     Dosage: PM (AS NEEDED)
     Dates: start: 20230123
  26. OMEPRAZOLE [Concomitant]
     Active Substance: DONEPEZIL HYDROCHLORIDE\OMEPRAZOLE\OMEPRAZOLE MAGNESIUM
     Dosage: DAILY
     Dates: start: 20230103, end: 20230109
  27. BISOPROLOL [Concomitant]
     Active Substance: BISOPROLOL\BISOPROLOL FUMARATE
     Dosage: 2.5 MG, 0.5 DAY
     Dates: start: 20210709, end: 20220124
  28. BISOPROLOL [Concomitant]
     Active Substance: BISOPROLOL\BISOPROLOL FUMARATE
     Dates: start: 20221216
  29. DEXAMETHASONE [Concomitant]
     Active Substance: DEXAMETHASONE
     Dosage: 8 MILLIGRAM
     Dates: start: 20201118, end: 20210104
  30. IBUPROFEN [Concomitant]
     Active Substance: IBUPROFEN
     Dosage: PM (AS NEEDED)
     Dates: start: 20230123, end: 20230507
  31. MAGNESIUM [Concomitant]
     Active Substance: MAGNESIUM
     Dosage: THREE TIMES A DAY
     Dates: start: 20220428, end: 20221215
  32. VITAMIN C [Concomitant]
     Active Substance: ASCORBIC ACID
     Dosage: DAILY
     Dates: start: 20230116, end: 20230530
  33. CALCIUM\CHOLECALCIFEROL [Concomitant]
     Active Substance: CALCIUM\CHOLECALCIFEROL
     Dosage: CALCIUM 500 MG / VITAMIN D 400 IU DAILY
     Dates: start: 20201118
  34. novalgin [Concomitant]
     Dosage: 500 MG
     Dates: start: 20230508
  35. TRASTUZUMAB [Suspect]
     Active Substance: TRASTUZUMAB
     Indication: Breast cancer
     Dosage: 336 MG (DATE OF MOST RECENT DOSE PRIOR TO AE 20/JUL/2021: 326 MG)
     Dates: start: 20210518, end: 20220608
  36. PERJETA [Suspect]
     Active Substance: PERTUZUMAB
     Indication: Breast cancer
     Dosage: 420 MG (DATE OF MOST RECENT DOSE PRIOR TO AE 20/JUL/2021: 420 MG)
     Dates: start: 20201210, end: 20210328
  37. ZOLEDRONIC ACID [Suspect]
     Active Substance: ZOLEDRONIC ACID
     Indication: Metastases to bone
     Dosage: Q4WEEKS, 2ND DOSE ON 16/DEC/2020 AND 3RD DOSE ON 13/JAN/2021
     Dates: start: 20201118
  38. POLYETHYLENE GLYCOLS [Concomitant]
     Active Substance: POLYETHYLENE GLYCOLS
     Dosage: PM (AS NEEDED)
     Dates: start: 20230530, end: 20230603
  39. POLYETHYLENE GLYCOLS [Concomitant]
     Active Substance: POLYETHYLENE GLYCOLS
     Dates: start: 20230801, end: 20230801
  40. POLYETHYLENE GLYCOLS [Concomitant]
     Active Substance: POLYETHYLENE GLYCOLS
     Dosage: PM (AS NEEDED)
     Dates: start: 20230509, end: 20230512
  41. POLYETHYLENE GLYCOLS [Concomitant]
     Active Substance: POLYETHYLENE GLYCOLS
     Dates: start: 20230822
  42. POLYETHYLENE GLYCOLS [Concomitant]
     Active Substance: POLYETHYLENE GLYCOLS
     Dates: start: 20230711, end: 20230715
  43. DEXAMETHASONE [Concomitant]
     Active Substance: DEXAMETHASONE
     Dates: start: 20220930, end: 20221023
  44. DEXAMETHASONE [Concomitant]
     Active Substance: DEXAMETHASONE
     Dosage: D1 CYCLE
     Dates: start: 20230417
  45. DEXAMETHASONE [Concomitant]
     Active Substance: DEXAMETHASONE
     Dates: end: 20220728
  46. DEXAMETHASONE [Concomitant]
     Active Substance: DEXAMETHASONE
     Dates: start: 20220728, end: 20230327

REACTIONS (13)
  - Dizziness [Not Recovered/Not Resolved]
  - Osteochondrosis [Not Recovered/Not Resolved]
  - Dry skin [Recovered/Resolved]
  - Back pain [Not Recovered/Not Resolved]
  - Underdose [Unknown]
  - Anaemia [Recovered/Resolved]
  - Chest pain [Recovered/Resolved]
  - Vulvovaginal dryness [Recovered/Resolved]
  - Atrial fibrillation [Recovered/Resolved]
  - Chest discomfort [Recovered/Resolved]
  - Left ventricular dysfunction [Recovered/Resolved]
  - Dysgeusia [Recovered/Resolved]
  - Abdominal pain upper [Recovered/Resolved]

NARRATIVE: CASE EVENT DATE: 20201217
